FAERS Safety Report 5352334-4 (Version None)
Quarter: 2007Q2

REPORT INFORMATION
  Report Type: 
  Country: None (occurrence: None)
  Receive Date: 20070607
  Receipt Date: 20070607
  Transmission Date: 20071010
  Serious: Yes (Other)
  Sender: FDA-Public Use
  Company Number: None

PATIENT
  Age: 57 Year
  Sex: Male
  Weight: 79.3795 kg

DRUGS (1)
  1. VERSED [Suspect]
     Indication: COLONOSCOPY
     Dosage: IV BOLUS
     Route: 040
     Dates: start: 20070516, end: 20070516

REACTIONS (1)
  - AMNESIA [None]
